FAERS Safety Report 4804713-9 (Version None)
Quarter: 2005Q4

REPORT INFORMATION
  Report Type: 
  Country: None (occurrence: None)
  Receive Date: 20051020
  Receipt Date: 20051012
  Transmission Date: 20060501
  Serious: Yes (Other)
  Sender: FDA-Public Use
  Company Number: 200519138GDDC

PATIENT
  Sex: Female

DRUGS (2)
  1. DOCETAXEL [Suspect]
     Dosage: DOSE: UNK
  2. GEMCITABINE [Concomitant]
     Dosage: DOSE: UNK

REACTIONS (4)
  - CONSTIPATION [None]
  - DIZZINESS [None]
  - HYPONATRAEMIA [None]
  - TREMOR [None]
